FAERS Safety Report 4590955-7 (Version None)
Quarter: 2005Q1

REPORT INFORMATION
  Report Type: 
  Country: None (occurrence: None)
  Receive Date: 20050225
  Receipt Date: 20050214
  Transmission Date: 20050727
  Serious: Yes (Death, Hospitalization)
  Sender: FDA-Public Use
  Company Number: PHBS2005JP02233

PATIENT
  Age: 75 Year
  Sex: Male
  Weight: 62 kg

DRUGS (6)
  1. LAMISIL [Suspect]
     Indication: TINEA BLANCA
     Dosage: 1 TAB/D
     Route: 048
     Dates: start: 20041208, end: 20041215
  2. PAXIL [Suspect]
     Indication: DEPRESSION
     Dosage: 2 DF/D
     Route: 048
     Dates: start: 20041203, end: 20041215
  3. PAXIL [Suspect]
     Dosage: 2 DF/D
     Route: 048
     Dates: start: 20041218, end: 20041223
  4. NAUZELIN [Concomitant]
     Dosage: 3 DF/D
     Route: 048
     Dates: start: 20041217, end: 20041221
  5. GASTER [Concomitant]
     Dosage: 1 DF/D
     Route: 048
     Dates: start: 20041217, end: 20041221
  6. ARTIFICIAL RESPIRATION [Suspect]
     Dates: start: 20050112

REACTIONS (19)
  - ALANINE AMINOTRANSFERASE INCREASED [None]
  - ASPARTATE AMINOTRANSFERASE INCREASED [None]
  - BLOOD ALKALINE PHOSPHATASE INCREASED [None]
  - BLOOD BILIRUBIN INCREASED [None]
  - BLOOD LACTATE DEHYDROGENASE INCREASED [None]
  - CHOLESTASIS [None]
  - EOSINOPHIL COUNT INCREASED [None]
  - GAMMA-GLUTAMYLTRANSFERASE INCREASED [None]
  - HAEMODIALYSIS [None]
  - LIVER DISORDER [None]
  - LYMPHOCYTE STIMULATION TEST POSITIVE [None]
  - MULTI-ORGAN FAILURE [None]
  - NAUSEA [None]
  - PNEUMONIA [None]
  - PROTHROMBIN TIME PROLONGED [None]
  - RENAL FAILURE [None]
  - SEPSIS [None]
  - VOMITING [None]
  - WHITE BLOOD CELL COUNT INCREASED [None]
